FAERS Safety Report 6304685-4 (Version None)
Quarter: 2009Q3

REPORT INFORMATION
  Report Type: 
  Country: None (occurrence: None)
  Receive Date: 20090806
  Receipt Date: 20090724
  Transmission Date: 20100115
  Serious: Yes (Hospitalization, Other)
  Sender: FDA-Public Use
  Company Number: MC200900231

PATIENT
  Age: 84 Year

DRUGS (11)
  1. ANGIOMAX [Suspect]
     Indication: PERCUTANEOUS CORONARY INTERVENTION
     Dosage: 42 MG, SINGLE, (BOLUS) AT 09:21, INTRAVENOUS; 96 MG, HR (INFUSION) AT 09:22, INTRAVENOUS
     Route: 042
  2. NITROGLYCERIN [Suspect]
     Indication: PERCUTANEOUS CORONARY INTERVENTION
     Dosage: SEE IMAGE
     Route: 062
  3. XYLOCAINE /00033401/ (LIDOCAINE, 2% [Concomitant]
  4. ATROPINE [Concomitant]
  5. DOPAMINE HCL [Concomitant]
  6. MAXERAN (METOCLOPRAMIDE HYDROCHLORIDE) [Concomitant]
  7. EPINEPHRINE [Concomitant]
  8. ASPIRIN [Concomitant]
  9. PLAVIX [Concomitant]
  10. PRAVASTATIN [Concomitant]
  11. RAMIPRIL [Concomitant]

REACTIONS (6)
  - CORONARY ARTERY PERFORATION [None]
  - PERICARDIAL HAEMORRHAGE [None]
  - POST PROCEDURAL HAEMORRHAGE [None]
  - SURGICAL PROCEDURE REPEATED [None]
  - THROMBOSIS [None]
  - VASCULAR INJURY [None]
